FAERS Safety Report 6141554-7 (Version None)
Quarter: 2009Q2

REPORT INFORMATION
  Report Type: 
  Country: None (occurrence: None)
  Receive Date: 20090402
  Receipt Date: 20090327
  Transmission Date: 20091009
  Serious: Yes (Hospitalization)
  Sender: FDA-Public Use
  Company Number: A0690866A

PATIENT
  Age: 39 Year
  Sex: Male
  Weight: 88.6 kg

DRUGS (6)
  1. AVANDIA [Suspect]
     Dosage: 8MG PER DAY
     Route: 048
     Dates: start: 19990701, end: 20070101
  2. AVANDAMET [Suspect]
     Route: 048
     Dates: start: 20051118, end: 20070521
  3. METFORMIN HCL [Concomitant]
     Dosage: 1000MG TWICE PER DAY
     Dates: start: 19990101
  4. GLYSET [Concomitant]
     Dates: start: 20010101, end: 20030101
  5. GLUCOPHAGE [Concomitant]
  6. ZOCOR [Concomitant]

REACTIONS (2)
  - ACUTE CORONARY SYNDROME [None]
  - MYOCARDIAL INFARCTION [None]
